FAERS Safety Report 6505422-0 (Version None)
Quarter: 2009Q4

REPORT INFORMATION
  Report Type: 
  Country: None (occurrence: None)
  Receive Date: 20091218
  Receipt Date: 20091208
  Transmission Date: 20100525
  Serious: Yes (Other)
  Sender: FDA-Public Use
  Company Number: JP-AMGEN-US373367

PATIENT
  Sex: Female

DRUGS (11)
  1. ENBREL [Suspect]
     Indication: RHEUMATOID ARTHRITIS
     Route: 058
     Dates: end: 20081113
  2. ENBREL [Suspect]
     Dates: start: 20081212, end: 20090306
  3. ENBREL [Suspect]
     Route: 058
     Dates: start: 20090410, end: 20090728
  4. PREDONINE [Concomitant]
     Route: 048
     Dates: start: 20080807
  5. PREDONINE [Concomitant]
     Route: 048
     Dates: start: 20090123, end: 20090412
  6. PREDONINE [Concomitant]
     Route: 048
     Dates: start: 20090413, end: 20090427
  7. PREDONINE [Concomitant]
     Route: 048
     Dates: start: 20090427, end: 20090625
  8. PREDONINE [Concomitant]
     Route: 048
     Dates: start: 20090625, end: 20090717
  9. PREDONINE [Concomitant]
     Route: 048
     Dates: start: 20090717, end: 20090903
  10. PREDONINE [Concomitant]
     Route: 048
     Dates: start: 20090903, end: 20091112
  11. PREDONINE [Concomitant]
     Route: 048
     Dates: start: 20091112

REACTIONS (2)
  - CATARACT [None]
  - NECROTISING SCLERITIS [None]
